FAERS Safety Report 7727195-6 (Version None)
Quarter: 2011Q3

REPORT INFORMATION
  Report Type: 
  Country: None (occurrence: None)
  Receive Date: 20110902
  Receipt Date: 20110301
  Transmission Date: 20111222
  Serious: No
  Sender: FDA-Public Use
  Company Number: US-BAYER-2011-020530

PATIENT
  Sex: Male

DRUGS (1)
  1. MAGNEVIST [Suspect]
     Indication: NUCLEAR MAGNETIC RESONANCE IMAGING BRAIN
     Dosage: 20 ML, UNK

REACTIONS (5)
  - SNEEZING [None]
  - NASAL CONGESTION [None]
  - EYE SWELLING [None]
  - EYE PRURITUS [None]
  - LACRIMATION INCREASED [None]
